FAERS Safety Report 8059823-2 (Version None)
Quarter: 2012Q1

REPORT INFORMATION
  Report Type: 
  Country: None (occurrence: None)
  Receive Date: 20120120
  Receipt Date: 20120109
  Transmission Date: 20120608
  Serious: Yes (Other)
  Sender: FDA-Public Use
  Company Number: CA-JNJFOC-20120106793

PATIENT
  Sex: Female
  Weight: 59 kg

DRUGS (11)
  1. IMURAN [Concomitant]
     Route: 065
  2. ALL OTHER THERAPEUTIC PRODUCTS [Concomitant]
     Route: 065
  3. VIMOVO [Concomitant]
     Route: 065
  4. FOLIC ACID [Concomitant]
     Route: 065
  5. ASPIRIN [Concomitant]
     Route: 065
  6. GLUCOSAMINE [Concomitant]
     Route: 065
  7. CALCIUM AND VITAMIN D [Concomitant]
     Route: 065
  8. ESTRACE [Concomitant]
     Route: 065
  9. VITAMIN A [Concomitant]
     Route: 065
  10. REMICADE [Suspect]
     Indication: RHEUMATOID ARTHRITIS
     Route: 042
     Dates: start: 20111114, end: 20111114
  11. PERMETHRIN [Concomitant]
     Route: 065

REACTIONS (4)
  - BURSITIS [None]
  - RASH ERYTHEMATOUS [None]
  - DRY SKIN [None]
  - PRURITUS [None]
